FAERS Safety Report 6574587-7 (Version None)
Quarter: 2010Q1

REPORT INFORMATION
  Report Type: 
  Country: None (occurrence: None)
  Receive Date: 20100209
  Receipt Date: 20100125
  Transmission Date: 20100710
  Serious: Yes (Death)
  Sender: FDA-Public Use
  Company Number: GB-TYCO HEALTHCARE/MALLINCKRODT-T201000333

PATIENT

DRUGS (1)
  1. ANAFRANIL CAP [Suspect]
     Dosage: UNK

REACTIONS (1)
  - SUDDEN DEATH [None]
